FAERS Safety Report 19087521 (Version 1)
Quarter: 2021Q2

REPORT INFORMATION
  Report Type: Spontaneous
  Country: GB (occurrence: GB)
  Receive Date: 20210402
  Receipt Date: 20210402
  Transmission Date: 20210717
  Serious: Yes (Life-Threatening, Hospitalization, Other)
  Sender: FDA-Public Use
  Company Number: None

PATIENT
  Age: 5 Week
  Sex: Female
  Weight: 4.58 kg

DRUGS (1)
  1. WOODWARD^S GRIPE WATER [Suspect]
     Active Substance: HERBALS\SODIUM BICARBONATE
     Indication: ABDOMINAL PAIN UPPER
     Dosage: ?          QUANTITY:1 TEASPOON(S);OTHER FREQUENCY:UPTO 6 TDS;?
     Route: 048
     Dates: start: 20210329, end: 20210329

REACTIONS (5)
  - Skin discolouration [None]
  - Heart rate increased [None]
  - Eye movement disorder [None]
  - Cyanosis [None]
  - Unresponsive to stimuli [None]

NARRATIVE: CASE EVENT DATE: 20210329
